FAERS Safety Report 25553854 (Version 1)
Quarter: 2025Q3

REPORT INFORMATION
  Report Type: Report from Study
  Country: US (occurrence: US)
  Receive Date: 20250715
  Receipt Date: 20250715
  Transmission Date: 20251020
  Serious: Yes (Hospitalization)
  Sender: ALEXION PHARMACEUTICALS
  Company Number: US-AstraZeneca-CH-00909000A

PATIENT
  Sex: Female
  Weight: 67.088 kg

DRUGS (7)
  1. CAPIVASERTIB [Suspect]
     Active Substance: CAPIVASERTIB
     Indication: Neoplasm malignant
     Dosage: 400 MILLIGRAM, BID
     Dates: start: 202506
  2. ANASTROZOLE [Concomitant]
     Active Substance: ANASTROZOLE
  3. FULVESTRANT [Concomitant]
     Active Substance: FULVESTRANT
  4. LOPERAMIDE HYDROCHLORIDE [Concomitant]
     Active Substance: LOPERAMIDE HYDROCHLORIDE
     Route: 065
  5. ONDANSETRON HYDROCHLORIDE [Concomitant]
     Active Substance: ONDANSETRON HYDROCHLORIDE
  6. VERZENIO [Concomitant]
     Active Substance: ABEMACICLIB
  7. CRANBERRY [Concomitant]
     Active Substance: CRANBERRY

REACTIONS (4)
  - Blood potassium decreased [Recovering/Resolving]
  - Blood electrolytes decreased [Recovering/Resolving]
  - Loss of consciousness [Recovering/Resolving]
  - Vomiting [Recovering/Resolving]
